FAERS Safety Report 7892002-8 (Version None)
Quarter: 2011Q4

REPORT INFORMATION
  Report Type: 
  Country: None (occurrence: None)
  Receive Date: 20111103
  Receipt Date: 20110812
  Transmission Date: 20120403
  Serious: No
  Sender: FDA-Public Use
  Company Number: US-AMGEN-USASP2011041078

PATIENT
  Age: 48 Year
  Sex: Male

DRUGS (3)
  1. INSULIN [Suspect]
  2. METHOTREXATE [Concomitant]
     Dates: start: 20110201
  3. ENBREL [Suspect]
     Indication: ANKYLOSING SPONDYLITIS
     Dosage: 50 MG, QWK
     Dates: start: 20110601

REACTIONS (5)
  - ANKYLOSING SPONDYLITIS [None]
  - INSOMNIA [None]
  - ARTHROPOD BITE [None]
  - DRUG INEFFECTIVE [None]
  - FATIGUE [None]
